FAERS Safety Report 9290742 (Version 1)
Quarter: 2013Q2

REPORT INFORMATION
  Report Type: Spontaneous
  Country: US (occurrence: None)
  Receive Date: 20130513
  Receipt Date: 20130513
  Transmission Date: 20140414
  Serious: Yes (Death)
  Sender: FDA-Public Use
  Company Number: SYM-2013-03681

PATIENT
  Sex: 0

DRUGS (3)
  1. FLUOROURACIL (FLUOROURACIL) (FLUOROURACIL) [Suspect]
     Indication: LARYNGEAL SQUAMOUS CELL CARCINOMA
  2. CISPLATIN [Suspect]
     Indication: LARYNGEAL SQUAMOUS CELL CARCINOMA
  3. THERAPEUTIC RADIOPHARMACEUTICALS (THERAPEUTIC RADIOPHARMACEUTICALS) [Suspect]
     Indication: LARYNGEAL SQUAMOUS CELL CARCINOMA

REACTIONS (1)
  - Death [None]
